FAERS Safety Report 6923529-0 (Version None)
Quarter: 2010Q3

REPORT INFORMATION
  Report Type: 
  Country: None (occurrence: None)
  Receive Date: 20100813
  Receipt Date: 20100805
  Transmission Date: 20110219
  Serious: Yes (Death, Hospitalization)
  Sender: FDA-Public Use
  Company Number: A0844297A

PATIENT
  Age: 69 Year
  Sex: Male
  Weight: 76.8 kg

DRUGS (7)
  1. AVANDIA [Suspect]
     Indication: DIABETES MELLITUS
     Dosage: 8MG PER DAY
     Route: 048
     Dates: start: 20010829, end: 20070508
  2. DIGOXIN [Concomitant]
     Dates: end: 20050901
  3. METOPROLOL TARTRATE [Concomitant]
     Dates: end: 20050901
  4. PRILOSEC [Concomitant]
  5. GLYBURIDE [Concomitant]
  6. LASIX [Concomitant]
  7. COZAAR [Concomitant]

REACTIONS (3)
  - CARDIAC FAILURE CONGESTIVE [None]
  - CEREBROVASCULAR ACCIDENT [None]
  - TRANSIENT ISCHAEMIC ATTACK [None]
